FAERS Safety Report 5409466-1 (Version None)
Quarter: 2007Q3

REPORT INFORMATION
  Report Type: 
  Country: None (occurrence: None)
  Receive Date: 20070807
  Receipt Date: 20070724
  Transmission Date: 20080115
  Serious: Yes (Hospitalization)
  Sender: FDA-Public Use
  Company Number: SPV1-2007-03676

PATIENT

DRUGS (1)
  1. LIALDA [Suspect]
     Dosage: ORAL
     Route: 048

REACTIONS (1)
  - PNEUMONITIS [None]
